FAERS Safety Report 10830495 (Version 2)
Quarter: 2015Q1

REPORT INFORMATION
  Report Type: Spontaneous
  Country: US (occurrence: US)
  Receive Date: 20150219
  Receipt Date: 20150331
  Transmission Date: 20150721
  Serious: No
  Sender: FDA-Public Use
  Company Number: US-PFIZER INC-2015060742

PATIENT
  Age: 60 Year
  Sex: Male

DRUGS (3)
  1. ADVIL [Suspect]
     Active Substance: IBUPROFEN
     Indication: EAR PAIN
  2. ADVIL [Suspect]
     Active Substance: IBUPROFEN
     Indication: TOOTH EXTRACTION
     Dosage: 1600 MG, DAILY 200 MG 8 IN A DAY (24 HRS)
     Dates: start: 201501, end: 201502
  3. ADVIL [Suspect]
     Active Substance: IBUPROFEN
     Indication: TOOTHACHE

REACTIONS (3)
  - Tinnitus [Not Recovered/Not Resolved]
  - Hearing impaired [Not Recovered/Not Resolved]
  - Overdose [Not Recovered/Not Resolved]

NARRATIVE: CASE EVENT DATE: 2015
